FAERS Safety Report 7334620-1 (Version None)
Quarter: 2011Q1

REPORT INFORMATION
  Report Type: 
  Country: None (occurrence: None)
  Receive Date: 20110307
  Receipt Date: 20110223
  Transmission Date: 20110831
  Serious: Yes (Hospitalization)
  Sender: FDA-Public Use
  Company Number: MX-ELI_LILLY_AND_COMPANY-MX201102007547

PATIENT
  Age: 53 Year
  Sex: Female
  Weight: 64 kg

DRUGS (4)
  1. FOLIC ACID [Concomitant]
  2. IRON [Concomitant]
  3. EPOGEN [Concomitant]
  4. HUMALOG MIX 75/25 [Suspect]
     Dosage: 30 IU, DAILY (1/D)
     Route: 058
     Dates: start: 20090301

REACTIONS (4)
  - BLOOD GLUCOSE INCREASED [None]
  - URINE OUTPUT DECREASED [None]
  - LABORATORY TEST ABNORMAL [None]
  - MALAISE [None]
